FAERS Safety Report 17791510 (Version 1)
Quarter: 2020Q2

REPORT INFORMATION
  Report Type: Report from Study
  Country: None (occurrence: CO)
  Receive Date: 20200515
  Receipt Date: 20200515
  Transmission Date: 20200714
  Serious: Yes (Disabling)
  Sender: FDA-Public Use
  Company Number: CO-ABBVIE-20K-036-3403638-00

PATIENT
  Sex: Male
  Weight: 65 kg

DRUGS (2)
  1. HUMIRA [Suspect]
     Active Substance: ADALIMUMAB
     Indication: PSORIATIC ARTHROPATHY
     Route: 058
  2. HUMIRA [Suspect]
     Active Substance: ADALIMUMAB
     Indication: PSORIATIC ARTHROPATHY
     Route: 058
     Dates: start: 20131007

REACTIONS (2)
  - Peripheral venous disease [Recovering/Resolving]
  - Bone scan abnormal [Unknown]

NARRATIVE: CASE EVENT DATE: 2019
